FAERS Safety Report 16461746 (Version 2)
Quarter: 2019Q2

REPORT INFORMATION
  Report Type: Spontaneous
  Country: BR (occurrence: BR)
  Receive Date: 20190621
  Receipt Date: 20190627
  Transmission Date: 20190711
  Serious: Yes (Hospitalization)
  Sender: FDA-Public Use
  Company Number: BR-BAXTER-2019BAX012070

PATIENT
  Age: 26 Year
  Sex: Female

DRUGS (3)
  1. SUCROFER [ELEMENTAL IRON] [Suspect]
     Active Substance: IRON
     Indication: ANAEMIA
     Dosage: SINGLE DOSE, DILUTED IN 100 ML SALINE SOLUTION 0.9% (IN AROUND OF 60 MINUTES OF ADMINISTRATION)
     Route: 042
     Dates: start: 20190218, end: 20190218
  2. CLORETO DE S?DIO - BAXTER [Suspect]
     Active Substance: SODIUM CHLORIDE
     Indication: MEDICATION DILUTION
     Dosage: AS PART OF SINGLE DOSE SUCROFER; IN AROUND 60 MINUTES OF ADMINISTRATION
     Route: 042
     Dates: start: 20190218, end: 20190218
  3. POLARAMINE [Suspect]
     Active Substance: DEXCHLORPHENIRAMINE MALEATE
     Indication: PROPHYLAXIS
     Dosage: 30 MINUTES BEFORE SUCROFER, SINGLE DOSE
     Route: 048
     Dates: start: 20190218, end: 20190218

REACTIONS (12)
  - Paraesthesia [Recovered/Resolved]
  - Abdominal pain [Recovered/Resolved]
  - Hypoaesthesia [Recovered/Resolved]
  - Induration [Recovered/Resolved]
  - Hyperhidrosis [Recovered/Resolved]
  - Dyspnoea [Recovered/Resolved]
  - Skin striae [Recovered/Resolved]
  - Pain in extremity [Recovered/Resolved]
  - Diarrhoea [Recovered/Resolved]
  - Nausea [Recovered/Resolved]
  - Syncope [Recovered/Resolved]
  - Urticaria [Recovered/Resolved]

NARRATIVE: CASE EVENT DATE: 20190218
